FAERS Safety Report 17261063 (Version 4)
Quarter: 2020Q1

REPORT INFORMATION
  Report Type: Spontaneous
  Country: US (occurrence: US)
  Receive Date: 20200113
  Receipt Date: 20200205
  Transmission Date: 20200409
  Serious: Yes (Hospitalization)
  Sender: FDA-Public Use
  Company Number: US-AUROBINDO-AUR-APL-2020-002215

PATIENT
  Age: 65 Year
  Sex: Female
  Weight: 68 kg

DRUGS (1)
  1. SULFAMETHOXAZOLE AND TRIMETHOPRIM TABLETS USP 800/160 MG [Suspect]
     Active Substance: SULFAMETHOXAZOLE\TRIMETHOPRIM
     Indication: PRODUCT USED FOR UNKNOWN INDICATION
     Dosage: 160 MG, 02 TABLETS PER DAY FOR 03 THREE DAYS
     Route: 065
     Dates: start: 20191230

REACTIONS (9)
  - Ill-defined disorder [Unknown]
  - Pyrexia [Unknown]
  - Abdominal distension [Unknown]
  - Fatigue [Unknown]
  - Back pain [Not Recovered/Not Resolved]
  - Abdominal pain upper [Not Recovered/Not Resolved]
  - Pain [Unknown]
  - Gastrointestinal pain [Unknown]
  - Feeling abnormal [Unknown]

NARRATIVE: CASE EVENT DATE: 20191231
